FAERS Safety Report 6188803-7 (Version None)
Quarter: 2009Q2

REPORT INFORMATION
  Report Type: 
  Country: None (occurrence: None)
  Receive Date: 20090513
  Receipt Date: 20090504
  Transmission Date: 20091009
  Serious: Yes (Other)
  Sender: FDA-Public Use
  Company Number: PL-PFIZER INC-2009207149

PATIENT

DRUGS (1)
  1. DEPO-MEDROL [Suspect]

REACTIONS (5)
  - CONSTIPATION [None]
  - DRY MOUTH [None]
  - FAECES DISCOLOURED [None]
  - FEELING ABNORMAL [None]
  - OCCULT BLOOD [None]
